FAERS Safety Report 21471962 (Version 1)
Quarter: 2022Q4

REPORT INFORMATION
  Report Type: Spontaneous
  Country: CA (occurrence: CA)
  Receive Date: 20221018
  Receipt Date: 20221018
  Transmission Date: 20230112
  Serious: Yes (Other)
  Sender: FDA-Public Use
  Company Number: CA-JNJFOC-20221025307

PATIENT
  Age: 31 Year
  Sex: Male
  Weight: 80 kg

DRUGS (3)
  1. REMICADE [Suspect]
     Active Substance: INFLIXIMAB
     Indication: Colitis ulcerative
     Route: 041
  2. HYDROCORTISONE [Concomitant]
     Active Substance: HYDROCORTISONE
     Indication: Premedication
     Route: 065
  3. MESALAMINE [Concomitant]
     Active Substance: MESALAMINE
     Route: 065

REACTIONS (15)
  - Burning sensation [Recovered/Resolved]
  - Carpal tunnel syndrome [Recovered/Resolved]
  - Cubital tunnel syndrome [Recovered/Resolved]
  - Hypoaesthesia [Recovered/Resolved]
  - Neuralgia [Recovered/Resolved]
  - Paraesthesia [Recovered/Resolved]
  - Weight increased [Recovered/Resolved]
  - Rhinitis [Recovered/Resolved]
  - Nasopharyngitis [Recovered/Resolved]
  - Condition aggravated [Recovered/Resolved]
  - Infusion related reaction [Recovered/Resolved]
  - Heart rate decreased [Recovered/Resolved]
  - Intentional product use issue [Recovered/Resolved]
  - Inappropriate schedule of product administration [Recovered/Resolved]
  - Off label use [Recovered/Resolved]
